FAERS Safety Report 13497680 (Version 2)
Quarter: 2018Q4

REPORT INFORMATION
  Report Type: Report from Study
  Country: IT (occurrence: IT)
  Receive Date: 20170501
  Receipt Date: 20181017
  Transmission Date: 20190204
  Serious: Yes (Death, Other)
  Sender: FDA-Public Use
  Company Number: IT-ROCHE-1923559

PATIENT

DRUGS (7)
  1. PIPOBROMAN [Suspect]
     Active Substance: PIPOBROMAN
     Indication: POLYCYTHAEMIA VERA
     Route: 065
  2. THALIDOMID [Suspect]
     Active Substance: THALIDOMIDE
     Indication: POLYCYTHAEMIA VERA
     Route: 065
  3. HYDROXYUREA. [Suspect]
     Active Substance: HYDROXYUREA
     Indication: POLYCYTHAEMIA VERA
     Route: 065
  4. ANAGRELIDE. [Suspect]
     Active Substance: ANAGRELIDE HYDROCHLORIDE
     Indication: POLYCYTHAEMIA VERA
     Route: 065
  5. ASPIRIN. [Concomitant]
     Active Substance: ASPIRIN
     Dosage: 75-150 MG/DAY
     Route: 065
  6. PEG-INTERFERON ALFA 2A [Suspect]
     Active Substance: PEGINTERFERON ALFA-2A
     Indication: POLYCYTHAEMIA VERA
     Route: 065
  7. LENALIDOMIDE [Suspect]
     Active Substance: LENALIDOMIDE
     Indication: POLYCYTHAEMIA VERA
     Route: 065

REACTIONS (39)
  - Atrial fibrillation [Unknown]
  - Aspiration [Unknown]
  - Renal failure [Unknown]
  - Bladder cancer [Unknown]
  - Aquagenic pruritus [Unknown]
  - Septic shock [Fatal]
  - Gastrointestinal haemorrhage [Unknown]
  - Cardiac failure [Unknown]
  - Respiratory failure [Unknown]
  - Hypertension [Unknown]
  - Mouth ulceration [Unknown]
  - Hyponatraemia [Unknown]
  - Rectal haemorrhage [Unknown]
  - Erythema [Unknown]
  - Tinnitus [Unknown]
  - Vomiting [Unknown]
  - Syncope [Unknown]
  - Pneumonia bacterial [Unknown]
  - Thrombocytosis [Unknown]
  - Haematocrit increased [Unknown]
  - Anaemia [Unknown]
  - Arthralgia [Unknown]
  - Aphthous ulcer [Unknown]
  - Cellulitis [Unknown]
  - Breast cancer [Unknown]
  - Asthenia [Unknown]
  - Cough [Unknown]
  - Erythromelalgia [Unknown]
  - Thrombocytopenia [Unknown]
  - Leukocytosis [Unknown]
  - Extremity necrosis [Unknown]
  - Pain in extremity [Unknown]
  - Pruritus [Unknown]
  - Influenza [Unknown]
  - Lipase increased [Unknown]
  - Neutropenia [Unknown]
  - Diarrhoea [Unknown]
  - Suicidal ideation [Unknown]
  - Actinic keratosis [Unknown]
